FAERS Safety Report 5383143-8 (Version None)
Quarter: 2007Q3

REPORT INFORMATION
  Report Type: 
  Country: None (occurrence: None)
  Receive Date: 20070710
  Receipt Date: 20070627
  Transmission Date: 20080115
  Serious: Yes (Hospitalization)
  Sender: FDA-Public Use
  Company Number: US-ELI_LILLY_AND_COMPANY-US200706006143

PATIENT
  Age: 28 Year
  Sex: Female

DRUGS (6)
  1. HUMULIN 70/30 [Suspect]
     Indication: DIABETES MELLITUS
     Dates: end: 20070401
  2. HUMALOG [Suspect]
     Indication: DIABETES MELLITUS
     Dates: start: 20070401
  3. LANTUS [Concomitant]
     Indication: DIABETES MELLITUS
  4. AVANDIA [Concomitant]
     Indication: DIABETES MELLITUS
  5. GLUCOPHAGE [Concomitant]
     Indication: DIABETES MELLITUS
  6. ANTIBIOTICS [Concomitant]
     Indication: INFECTION

REACTIONS (6)
  - BLOOD GLUCOSE INCREASED [None]
  - CONFUSIONAL STATE [None]
  - INFECTION [None]
  - NODULE [None]
  - PAIN [None]
  - VIRAL INFECTION [None]
